FAERS Safety Report 20347422 (Version 1)
Quarter: 2022Q1

REPORT INFORMATION
  Report Type: Spontaneous
  Country: US (occurrence: None)
  Receive Date: 20220118
  Receipt Date: 20220118
  Transmission Date: 20220423
  Serious: Yes (Other)
  Sender: FDA-Public Use
  Company Number: None

PATIENT
  Age: 72 Year
  Sex: Male

DRUGS (9)
  1. LYNPARZA [Suspect]
     Active Substance: OLAPARIB
     Indication: Colon cancer
     Dosage: FREQUENCY : TWICE A DAY;?
     Route: 048
     Dates: start: 202107
  2. VENLAFAXINE [Concomitant]
  3. TAMSULOSIN [Concomitant]
  4. METOPROLOL [Concomitant]
     Active Substance: METOPROLOL
  5. ATORVASTATIN [Concomitant]
  6. CLOPIDOGREL [Concomitant]
  7. LANTUS [Concomitant]
  8. OMEPRAZOLE [Concomitant]
  9. IBERSARTAN/HCTZ [Concomitant]

REACTIONS (2)
  - Fatigue [None]
  - Somnolence [None]
